FAERS Safety Report 24412727 (Version 4)
Quarter: 2024Q4

REPORT INFORMATION
  Report Type: Spontaneous
  Country: US (occurrence: US)
  Receive Date: 20241008
  Receipt Date: 20241210
  Transmission Date: 20250115
  Serious: Yes (Other)
  Sender: BLUEPRINT MEDICINES
  Company Number: US-Blueprint Medicines Corporation-4939

PATIENT
  Age: 48 Year
  Sex: Male

DRUGS (13)
  1. AYVAKIT [Suspect]
     Active Substance: AVAPRITINIB
     Indication: Advanced systemic mastocytosis
     Route: 048
     Dates: start: 202408
  2. AYVAKIT [Suspect]
     Active Substance: AVAPRITINIB
     Route: 065
  3. BENADRYL [Concomitant]
     Active Substance: DIPHENHYDRAMINE HYDROCHLORIDE
     Indication: Product used for unknown indication
     Route: 065
  4. CETIRIZINE [Concomitant]
     Active Substance: CETIRIZINE HYDROCHLORIDE
     Indication: Product used for unknown indication
     Route: 065
  5. CYCLOBENZAPRINE [Concomitant]
     Active Substance: CYCLOBENZAPRINE
     Indication: Product used for unknown indication
     Route: 065
  6. FAMOTIDINE [Concomitant]
     Active Substance: FAMOTIDINE
     Indication: Product used for unknown indication
     Route: 065
  7. LOSARTAN [Concomitant]
     Active Substance: LOSARTAN
     Indication: Product used for unknown indication
     Route: 065
  8. METOPROLOL [Concomitant]
     Active Substance: METOPROLOL
     Indication: Product used for unknown indication
     Route: 065
  9. PLAVIX [Concomitant]
     Active Substance: CLOPIDOGREL BISULFATE
     Indication: Product used for unknown indication
     Route: 065
  10. TRAMADOL [Concomitant]
     Active Substance: TRAMADOL
     Indication: Product used for unknown indication
     Route: 065
  11. ULORIC [Concomitant]
     Active Substance: FEBUXOSTAT
     Indication: Product used for unknown indication
     Route: 065
  12. VALIUM [Concomitant]
     Active Substance: DIAZEPAM
     Indication: Product used for unknown indication
     Route: 065
  13. Coricidin [Concomitant]
     Indication: Product used for unknown indication
     Route: 065

REACTIONS (16)
  - Cardiovascular insufficiency [Recovering/Resolving]
  - Hallucinations, mixed [Recovering/Resolving]
  - Erectile dysfunction [Recovered/Resolved]
  - Skin cancer [Recovered/Resolved]
  - Cyanosis [Recovering/Resolving]
  - Peripheral swelling [Recovering/Resolving]
  - Skin discolouration [Recovering/Resolving]
  - Pain in extremity [Recovering/Resolving]
  - Nausea [Recovered/Resolved]
  - Memory impairment [Recovered/Resolved]
  - Anger [Recovered/Resolved]
  - Fall [Recovered/Resolved]
  - Hair colour changes [Recovered/Resolved]
  - Dysphemia [Recovered/Resolved]
  - Erythema [Recovered/Resolved]
  - Hypoaesthesia [Recovered/Resolved]
